FAERS Safety Report 7167878-2 (Version None)
Quarter: 2010Q4

REPORT INFORMATION
  Report Type: 
  Country: None (occurrence: None)
  Receive Date: 20101216
  Receipt Date: 20101207
  Transmission Date: 20110411
  Serious: Yes (Hospitalization)
  Sender: FDA-Public Use
  Company Number: US-ELI_LILLY_AND_COMPANY-US201012001765

PATIENT
  Sex: Female
  Weight: 97.959 kg

DRUGS (10)
  1. BYETTA [Suspect]
     Indication: TYPE 2 DIABETES MELLITUS
     Dosage: 5 UG, 2/D
     Route: 058
  2. BYETTA [Suspect]
     Dosage: 10 UG, 2/D
     Route: 058
  3. METFORMIN [Concomitant]
     Indication: TYPE 2 DIABETES MELLITUS
     Dosage: 500 UNK, AS NEEDED
     Route: 048
  4. METFORMIN [Concomitant]
     Dosage: 1000 MG, AS NEEDED
     Route: 048
  5. CARVEDILOL [Concomitant]
     Indication: BLOOD PRESSURE
     Dosage: 6.25 MG, 2/D
     Route: 048
  6. BENICAR HCT [Concomitant]
     Indication: BLOOD PRESSURE
     Dosage: UNK, DAILY (1/D)
     Route: 048
  7. DETROL LA [Concomitant]
     Indication: BLADDER DISORDER
     Dosage: 4 MG, DAILY (1/D)
     Route: 048
  8. SIMVASTATIN [Concomitant]
     Indication: BLOOD CHOLESTEROL INCREASED
     Dosage: 10 MG, DAILY (1/D)
     Route: 048
  9. LEVOTHYROXINE [Concomitant]
     Indication: HYPOTHYROIDISM
     Dosage: 50 UG, DAILY (1/D)
     Route: 048
  10. ALLOPURINOL [Concomitant]
     Indication: GOUT
     Dosage: 100 MG, DAILY (1/D)
     Route: 048

REACTIONS (14)
  - ASTHENIA [None]
  - BLOOD GLUCOSE DECREASED [None]
  - BLOOD GLUCOSE INCREASED [None]
  - DECREASED APPETITE [None]
  - FEAR [None]
  - FLANK PAIN [None]
  - FLUID RETENTION [None]
  - HYPERHIDROSIS [None]
  - KIDNEY INFECTION [None]
  - NEPHROLITHIASIS [None]
  - RENAL DISORDER [None]
  - SEPSIS [None]
  - WEIGHT DECREASED [None]
  - WEIGHT INCREASED [None]
